FAERS Safety Report 14335684 (Version 1)
Quarter: 2017Q4

REPORT INFORMATION
  Report Type: Spontaneous
  Country: US (occurrence: US)
  Receive Date: 20171229
  Receipt Date: 20171229
  Transmission Date: 20180321
  Serious: No
  Sender: FDA-Public Use
  Company Number: US-TEVA-2017-US-833657

PATIENT
  Sex: Female

DRUGS (2)
  1. OTF-C [Suspect]
     Active Substance: FENTANYL CITRATE
     Indication: PAIN
  2. FENTANYL TRANSDERMAL SYSTEM [Concomitant]
     Active Substance: FENTANYL
     Route: 065

REACTIONS (3)
  - Ill-defined disorder [Unknown]
  - Malaise [None]
  - Drug ineffective [Unknown]
